FAERS Safety Report 5004498-X (Version None)
Quarter: 2006Q2

REPORT INFORMATION
  Report Type: 
  Country: None (occurrence: None)
  Receive Date: 20060511
  Receipt Date: 20060501
  Transmission Date: 20061013
  Serious: Yes (Death, Other)
  Sender: FDA-Public Use
  Company Number: 163-21880-06040114

PATIENT
  Age: 80 Year
  Sex: Female

DRUGS (11)
  1. REVLIMID [Suspect]
     Indication: CHRONIC MYELOMONOCYTIC LEUKAEMIA
     Dosage: 10 MG, QD, ORAL
     Route: 048
     Dates: start: 20060220, end: 20060322
  2. PAXIL [Concomitant]
  3. KLOR-CON [Concomitant]
  4. LASIX [Concomitant]
  5. SPIRONOLACTONE [Concomitant]
  6. CENTRUM [Concomitant]
  7. ALLOPURINOL [Concomitant]
  8. VICODIN [Concomitant]
  9. SENNA [Concomitant]
  10. ARANESP [Concomitant]
  11. IMODIUM [Concomitant]

REACTIONS (2)
  - BLOOD CREATININE INCREASED [None]
  - DISEASE PROGRESSION [None]
